FAERS Safety Report 20221850 (Version 1)
Quarter: 2021Q4

REPORT INFORMATION
  Report Type: Spontaneous
  Country: US (occurrence: US)
  Receive Date: 20211223
  Receipt Date: 20211223
  Transmission Date: 20220303
  Serious: Yes (Other)
  Sender: FDA-Public Use
  Company Number: US-GLAXOSMITHKLINE-US2021GSK260166

PATIENT
  Sex: Female

DRUGS (6)
  1. ZANTAC [Suspect]
     Active Substance: RANITIDINE HYDROCHLORIDE
     Indication: Product used for unknown indication
     Dosage: 300 MG, 4 TIMES A WEEK
     Route: 065
     Dates: start: 200201, end: 201901
  2. ZANTAC [Suspect]
     Active Substance: RANITIDINE HYDROCHLORIDE
     Indication: Product used for unknown indication
     Dosage: 300 MG, 4 TIMES A WEEK
     Route: 065
     Dates: start: 200201, end: 201901
  3. RANITIDINE [Suspect]
     Active Substance: RANITIDINE
     Indication: Product used for unknown indication
     Dosage: 150 MG
     Route: 065
  4. RANITIDINE [Suspect]
     Active Substance: RANITIDINE
     Indication: Product used for unknown indication
     Dosage: 150 MG
     Route: 065
  5. ZANTAC [Suspect]
     Active Substance: RANITIDINE HYDROCHLORIDE
     Indication: Product used for unknown indication
     Dosage: 300 MG, 4 TIMES A WEEK
     Route: 065
     Dates: start: 200201, end: 201901
  6. RANITIDINE [Suspect]
     Active Substance: RANITIDINE
     Indication: Product used for unknown indication
     Dosage: 300 MG, 4 TIMES A WEEK
     Route: 065
     Dates: start: 200201, end: 201901

REACTIONS (1)
  - Colorectal cancer [Unknown]
